FAERS Safety Report 8911508 (Version 1)
Quarter: 2012Q4

REPORT INFORMATION
  Report Type: 
  Country: SE (occurrence: SE)
  Receive Date: 20121115
  Receipt Date: 20121115
  Transmission Date: 20130627
  Serious: Yes (Hospitalization)
  Sender: FDA-Public Use
  Company Number: SE-ASTRAZENECA-2012SE84506

PATIENT
  Age: 32558 Day
  Sex: Female

DRUGS (3)
  1. SELOKEN ZOC [Suspect]
     Indication: ESSENTIAL HYPERTENSION
     Route: 048
     Dates: end: 20120817
  2. FURIX [Concomitant]
  3. LOSARTAN [Concomitant]

REACTIONS (2)
  - Bradycardia [Recovered/Resolved]
  - Arrhythmia [Recovered/Resolved]
